FAERS Safety Report 8151493-8 (Version None)
Quarter: 2012Q1

REPORT INFORMATION
  Report Type: 
  Country: None (occurrence: None)
  Receive Date: 20120220
  Receipt Date: 20120213
  Transmission Date: 20120608
  Serious: Yes (Life-Threatening, Hospitalization)
  Sender: FDA-Public Use
  Company Number: US-AMGEN-US282656

PATIENT
  Age: 84 Year
  Sex: Female

DRUGS (2)
  1. LENALIDOMIDE [Concomitant]
  2. ROMIPLOSTIM [Suspect]
     Indication: MYELODYSPLASTIC SYNDROME
     Dosage: UNK BLINDED, QWK
     Route: 058
     Dates: start: 20080110

REACTIONS (2)
  - THROMBOCYTOPENIA [None]
  - FEBRILE NEUTROPENIA [None]
